FAERS Safety Report 25742541 (Version 2)
Quarter: 2025Q3

REPORT INFORMATION
  Report Type: Report from Study
  Country: US (occurrence: US)
  Receive Date: 20250829
  Receipt Date: 20250924
  Transmission Date: 20251021
  Serious: Yes (Other)
  Sender: ALEXION PHARMACEUTICALS
  Company Number: US-AstraZeneca-CH-00939987A

PATIENT
  Age: 62 Year
  Sex: Female
  Weight: 55.782 kg

DRUGS (1)
  1. FARXIGA [Suspect]
     Active Substance: DAPAGLIFLOZIN PROPANEDIOL

REACTIONS (4)
  - Cardiac failure congestive [Unknown]
  - Glycosylated haemoglobin increased [Unknown]
  - Chronic kidney disease [Unknown]
  - Diabetes mellitus [Unknown]
